FAERS Safety Report 12518130 (Version 2)
Quarter: 2016Q3

REPORT INFORMATION
  Report Type: Spontaneous
  Country: US (occurrence: US)
  Receive Date: 20160630
  Receipt Date: 20160706
  Transmission Date: 20161109
  Serious: Yes (Other)
  Sender: FDA-Public Use
  Company Number: US-APOTEX-2016AP009408

PATIENT
  Age: 72 Year
  Sex: Female

DRUGS (1)
  1. HYDROCHLOROTHIAZIDE. [Suspect]
     Active Substance: HYDROCHLOROTHIAZIDE
     Indication: HYPERTENSION
     Dosage: 25 MG, DAY
     Route: 065

REACTIONS (4)
  - Hypokalaemia [Recovering/Resolving]
  - Nephrogenic diabetes insipidus [Recovering/Resolving]
  - Nephropathy [Recovering/Resolving]
  - Hypernatraemia [Recovering/Resolving]
